FAERS Safety Report 4605040-5 (Version None)
Quarter: 2005Q2

REPORT INFORMATION
  Report Type: 
  Country: None (occurrence: None)
  Receive Date: 20050217
  Receipt Date: 20050107
  Transmission Date: 20051028
  Serious: No
  Sender: FDA-Public Use
  Company Number: S05-USA-00060-01

PATIENT
  Age: 73 Year
  Sex: Male

DRUGS (13)
  1. NAMENDA [Suspect]
     Indication: AMNESIA
     Dosage: 5 MG BID PO
     Route: 048
     Dates: start: 20041226, end: 20050101
  2. NAMENDA [Suspect]
     Indication: AMNESIA
     Dosage: 5 MG QD PO
     Route: 048
     Dates: start: 20041219, end: 20041225
  3. TOPROL-XL [Concomitant]
  4. PRINIVIL [Concomitant]
  5. BUMEX [Concomitant]
  6. COUMADIN [Concomitant]
  7. TRICOR [Concomitant]
  8. LEXAPRO [Concomitant]
  9. STARLIX [Concomitant]
  10. ACIPHEX [Concomitant]
  11. PREDNISONE [Concomitant]
  12. VITAMIN E [Concomitant]
  13. ASCORBIC ACID [Concomitant]

REACTIONS (2)
  - ANOREXIA [None]
  - SOMNOLENCE [None]
